FAERS Safety Report 6069280-3 (Version None)
Quarter: 2009Q1

REPORT INFORMATION
  Report Type: 
  Country: None (occurrence: None)
  Receive Date: 20090206
  Receipt Date: 20090127
  Transmission Date: 20090719
  Serious: Yes (Hospitalization)
  Sender: FDA-Public Use
  Company Number: AU-PFIZER INC-2009155588

PATIENT

DRUGS (6)
  1. CHAMPIX [Suspect]
     Indication: SMOKING CESSATION THERAPY
     Dates: start: 20081108, end: 20081225
  2. CITALOPRAM HYDROBROMIDE [Concomitant]
     Indication: DEPRESSION
     Dosage: 20 MG, UNK
     Route: 048
     Dates: start: 19950101
  3. METFORMIN HYDROCHLORIDE [Concomitant]
     Indication: TYPE 2 DIABETES MELLITUS
     Dosage: 1 G, 3X/DAY
     Route: 048
     Dates: start: 19900101
  4. DIAMICRON MR [Concomitant]
     Indication: TYPE 2 DIABETES MELLITUS
     Dosage: 30 MG, UNK
     Route: 048
     Dates: start: 19960101
  5. COVERSYL [Concomitant]
     Indication: VASCULAR GRAFT
     Dosage: 5 MG, 1X/DAY
     Route: 048
  6. ASPIRIN [Concomitant]
     Indication: VASCULAR GRAFT
     Dosage: 100 MG, 1X/DAY
     Route: 048

REACTIONS (4)
  - DEPRESSION [None]
  - FALL [None]
  - GAIT DISTURBANCE [None]
  - HYPERSOMNIA [None]
